FAERS Safety Report 24668245 (Version 1)
Quarter: 2024Q4

REPORT INFORMATION
  Report Type: Spontaneous
  Country: US (occurrence: US)
  Receive Date: 20241127
  Receipt Date: 20241127
  Transmission Date: 20250115
  Serious: No
  Sender: CHATTEM
  Company Number: US-OPELLA-2024OHG039031

PATIENT
  Age: 67 Year
  Sex: Female

DRUGS (1)
  1. SELSUN BLUE MOISTURIZING [Suspect]
     Active Substance: SELENIUM SULFIDE
     Indication: Dry skin
     Route: 061

REACTIONS (2)
  - Hair texture abnormal [Unknown]
  - Wrong technique in product usage process [Unknown]
